FAERS Safety Report 23064559 (Version 1)
Quarter: 2023Q4

REPORT INFORMATION
  Report Type: Spontaneous
  Country: US (occurrence: None)
  Receive Date: 20231013
  Receipt Date: 20231013
  Transmission Date: 20240110
  Serious: Yes (Hospitalization)
  Sender: FDA-Public Use
  Company Number: None

PATIENT
  Age: 74 Year
  Sex: Male

DRUGS (2)
  1. NILOTINIB HYDROCHLORIDE ANHYDROUS [Suspect]
     Active Substance: NILOTINIB HYDROCHLORIDE ANHYDROUS
     Dates: end: 20220202
  2. PREDNISONE [Suspect]
     Active Substance: PREDNISONE
     Dates: start: 20230104

REACTIONS (5)
  - Upper respiratory tract infection [None]
  - Respiratory syncytial virus infection [None]
  - Blood loss anaemia [None]
  - Gastrointestinal haemorrhage [None]
  - Gastritis [None]

NARRATIVE: CASE EVENT DATE: 20230115
